FAERS Safety Report 7568858-5 (Version None)
Quarter: 2011Q2

REPORT INFORMATION
  Report Type: 
  Country: None (occurrence: None)
  Receive Date: 20110623
  Receipt Date: 20110614
  Transmission Date: 20111010
  Serious: Yes (Hospitalization)
  Sender: FDA-Public Use
  Company Number: US-AMGEN-USASP2011030486

PATIENT
  Age: 45 Year
  Sex: Female

DRUGS (1)
  1. ENBREL [Suspect]
     Indication: PSORIATIC ARTHROPATHY
     Dosage: 50 MG, QWK
     Dates: start: 20090901

REACTIONS (10)
  - OEDEMA PERIPHERAL [None]
  - HAEMORRHOIDS [None]
  - GROIN PAIN [None]
  - INFLUENZA LIKE ILLNESS [None]
  - COLITIS [None]
  - FATIGUE [None]
  - INJECTION SITE REACTION [None]
  - INJECTION SITE HAEMORRHAGE [None]
  - PAIN IN EXTREMITY [None]
  - LABORATORY TEST ABNORMAL [None]
